FAERS Safety Report 9318705 (Version 3)
Quarter: 2013Q2

REPORT INFORMATION
  Report Type: Spontaneous
  Country: CA (occurrence: None)
  Receive Date: 20130524
  Receipt Date: 20130624
  Transmission Date: 20140414
  Serious: Yes (Other)
  Sender: FDA-Public Use
  Company Number: 2013124882

PATIENT
  Age: 64 Year
  Sex: Female

DRUGS (1)
  1. FRAGMIN [Suspect]
     Route: 058
     Dates: start: 20130415

REACTIONS (4)
  - Injection site injury [None]
  - Needle issue [None]
  - Foreign body [None]
  - Product quality issue [None]
